FAERS Safety Report 8834647 (Version 1)
Quarter: 2012Q4

REPORT INFORMATION
  Report Type: 
  Country: US (occurrence: US)
  Receive Date: 20121010
  Receipt Date: 20121010
  Transmission Date: 20130627
  Serious: No
  Sender: FDA-Public Use
  Company Number: US-BAYER-2012-104859

PATIENT
  Age: 69 Year
  Sex: Female
  Weight: 91.61 kg

DRUGS (8)
  1. ALEVE CAPLET/TABLET,MIDOL EXTENDED RELIEF CAPLET [Suspect]
     Indication: ARTHRALGIA
     Dosage: 2 DF, PRN
     Route: 048
     Dates: start: 201209
  2. HYDROCHLOROTHIAZIDE [Concomitant]
  3. AMLODIPIN [Concomitant]
  4. LEVOTHYROXINE [Concomitant]
  5. OMEGA 3 [Concomitant]
  6. CALCIUM AL [Concomitant]
  7. CALCIUM CITRATE [Concomitant]
  8. AMLODIPINE BESYLATE [Concomitant]

REACTIONS (1)
  - No adverse event [None]
